FAERS Safety Report 6027103-2 (Version None)
Quarter: 2009Q1

REPORT INFORMATION
  Report Type: 
  Country: None (occurrence: None)
  Receive Date: 20090102
  Receipt Date: 20090102
  Transmission Date: 20090719
  Serious: No
  Sender: FDA-Public Use
  Company Number: None

PATIENT
  Age: 70 Year
  Sex: Female
  Weight: 61.2356 kg

DRUGS (1)
  1. SORIATANE [Suspect]
     Indication: SKIN PAPILLOMA
     Dosage: 25 MG DAILY PO
     Route: 048
     Dates: start: 20080409, end: 20080812

REACTIONS (1)
  - ALOPECIA [None]
